FAERS Safety Report 10861404 (Version 2)
Quarter: 2015Q2

REPORT INFORMATION
  Report Type: Spontaneous
  Country: IT (occurrence: IT)
  Receive Date: 20150224
  Receipt Date: 20150617
  Transmission Date: 20150821
  Serious: Yes (Hospitalization)
  Sender: FDA-Public Use
  Company Number: IT-NOVOPROD-439044

PATIENT
  Age: 91 Year
  Sex: Female
  Weight: 70 kg

DRUGS (7)
  1. NOVONORM [Suspect]
     Active Substance: REPAGLINIDE
     Indication: DIABETES MELLITUS
     Dosage: 1 MG, QD
     Route: 048
     Dates: start: 20130101, end: 20150205
  2. ENTACT [Concomitant]
     Active Substance: ESCITALOPRAM OXALATE
     Dosage: 1 U
  3. PLAVIX [Concomitant]
     Active Substance: CLOPIDOGREL BISULFATE
     Dosage: 1 U
  4. TALOFEN [Concomitant]
     Active Substance: PROMAZINE HYDROCHLORIDE
  5. LASIX [Concomitant]
     Active Substance: FUROSEMIDE
     Dosage: 2 U
  6. LANSOX [Concomitant]
     Active Substance: LANSOPRAZOLE
     Dosage: 1U
  7. ISOPTIN [Concomitant]
     Active Substance: VERAPAMIL HYDROCHLORIDE
     Dosage: 2 U

REACTIONS (5)
  - Aphasia [Recovered/Resolved]
  - Hypoglycaemia [Recovered/Resolved]
  - Confusional state [Recovered/Resolved]
  - Medication error [Unknown]
  - Dysstasia [Recovered/Resolved]

NARRATIVE: CASE EVENT DATE: 20150205
